FAERS Safety Report 9780168 (Version 1)
Quarter: 2013Q4

REPORT INFORMATION
  Report Type: Report from Study
  Country: US (occurrence: US)
  Receive Date: 20131223
  Receipt Date: 20131223
  Transmission Date: 20140711
  Serious: Yes (Hospitalization)
  Sender: FDA-Public Use
  Company Number: PHEH2013US025838

PATIENT
  Sex: Male

DRUGS (2)
  1. TOBI PODHALER [Suspect]
     Indication: CYSTIC FIBROSIS
     Dosage: 4 DF, (CAPSULE EVERY 12 HOURS)
     Route: 055
  2. TOBI [Suspect]
     Dosage: UNK UKN, UNK

REACTIONS (2)
  - Aspergillus infection [Unknown]
  - Choking [Unknown]
